FAERS Safety Report 7557482-6 (Version None)
Quarter: 2011Q2

REPORT INFORMATION
  Report Type: 
  Country: None (occurrence: None)
  Receive Date: 20110620
  Receipt Date: 20110606
  Transmission Date: 20111010
  Serious: Yes (Hospitalization)
  Sender: FDA-Public Use
  Company Number: RU-CELGENEUS-CA046-11-0208

PATIENT
  Sex: Female
  Weight: 78 kg

DRUGS (7)
  1. ABRAXANE [Suspect]
     Route: 065
     Dates: start: 20110317
  2. SPIRONOLACTONE [Concomitant]
     Route: 048
     Dates: start: 20100827
  3. KETOPROFEN [Concomitant]
     Indication: PAIN
     Route: 030
     Dates: start: 20100412
  4. ABRAXANE [Suspect]
     Indication: PANCREATIC CARCINOMA
     Route: 065
     Dates: start: 20100429, end: 20110303
  5. GEMCITABINE [Suspect]
     Indication: PANCREATIC CARCINOMA
     Dates: start: 20100429, end: 20101028
  6. OMEPRAZOLE [Concomitant]
     Indication: PAIN
     Route: 048
     Dates: start: 20100203
  7. PANCREATIN [Concomitant]
     Indication: PANCREATITIS
     Route: 048
     Dates: start: 20100412

REACTIONS (1)
  - GASTROINTESTINAL HAEMORRHAGE [None]
